FAERS Safety Report 9855321 (Version 2)
Quarter: 2014Q1

REPORT INFORMATION
  Report Type: Report from Study
  Country: US (occurrence: US)
  Receive Date: 20140130
  Receipt Date: 20140220
  Transmission Date: 20141002
  Serious: Yes (Hospitalization)
  Sender: FDA-Public Use
  Company Number: US-JNJFOC-20140115162

PATIENT
  Age: 19 Year
  Sex: Female
  Weight: 54.7 kg

DRUGS (9)
  1. REMICADE [Suspect]
     Indication: INFLAMMATORY BOWEL DISEASE
     Route: 042
     Dates: start: 20101105, end: 20120928
  2. GABAPENTIN [Concomitant]
     Route: 065
  3. KETOCONAZOLE [Concomitant]
     Route: 061
  4. MAXALT [Concomitant]
     Route: 065
  5. FLUOROMETHOLONE [Concomitant]
     Route: 065
  6. PRILOSEC [Concomitant]
     Route: 065
  7. ZOFRAN [Concomitant]
     Route: 048
  8. 6 MERCAPTOPURINE [Concomitant]
     Route: 065
  9. HUMIRA [Concomitant]
     Route: 065
     Dates: start: 20121115, end: 20131116

REACTIONS (1)
  - Abdominal pain [Recovered/Resolved]
